FAERS Safety Report 6357692-X (Version None)
Quarter: 2009Q3

REPORT INFORMATION
  Report Type: 
  Country: None (occurrence: None)
  Receive Date: 20090911
  Receipt Date: 20090831
  Transmission Date: 20100115
  Serious: Yes (Hospitalization)
  Sender: FDA-Public Use
  Company Number: 1-19599378

PATIENT
  Age: 52 Year
  Sex: Male
  Weight: 167.8309 kg

DRUGS (6)
  1. CLONIDINE HCL [Suspect]
     Indication: BLOOD PRESSURE
     Dosage: 0.1 MG TWICE DAILY, ORAL
     Route: 048
     Dates: start: 20090814, end: 20090815
  2. AMIODARONE HCL [Suspect]
     Dosage: 200 MG TWICE DAILY, ORAL
     Route: 048
     Dates: start: 20090814
  3. COREG [Concomitant]
  4. METFORMIN HCL [Concomitant]
  5. LISINOPRIL [Concomitant]
  6. LANTUS [Concomitant]

REACTIONS (14)
  - ACTIVATED PARTIAL THROMBOPLASTIN TIME PROLONGED [None]
  - ATRIAL FLUTTER [None]
  - BLOOD PRESSURE INADEQUATELY CONTROLLED [None]
  - BLOOD PRESSURE INCREASED [None]
  - CELLULITIS [None]
  - CONDITION AGGRAVATED [None]
  - DEAFNESS [None]
  - DYSPNOEA [None]
  - HYPERHIDROSIS [None]
  - NAUSEA [None]
  - PRESYNCOPE [None]
  - PYREXIA [None]
  - TINNITUS [None]
  - VISUAL IMPAIRMENT [None]
